FAERS Safety Report 13871920 (Version 1)
Quarter: 2017Q3

REPORT INFORMATION
  Report Type: Spontaneous
  Country: US (occurrence: US)
  Receive Date: 20170816
  Receipt Date: 20170816
  Transmission Date: 20171127
  Serious: Yes (Other)
  Sender: FDA-Public Use
  Company Number: US-PFIZER INC-2017348041

PATIENT
  Sex: Female

DRUGS (3)
  1. LASIX [Suspect]
     Active Substance: FUROSEMIDE
     Dosage: 40 MG, DAILY
  2. TOLTERODINE TARTRATE. [Suspect]
     Active Substance: TOLTERODINE TARTRATE
     Dosage: 4 MG, DAILY
  3. ZOLOFT [Suspect]
     Active Substance: SERTRALINE HYDROCHLORIDE
     Dosage: 50 MG, DAILY

REACTIONS (23)
  - Haemorrhagic diathesis [Unknown]
  - Skin discolouration [Unknown]
  - Increased tendency to bruise [Unknown]
  - Hypoaesthesia [Unknown]
  - Foot deformity [Unknown]
  - Impaired healing [Unknown]
  - Joint stiffness [Unknown]
  - Dry eye [Unknown]
  - Anosmia [Unknown]
  - Sleep disorder [Unknown]
  - Joint swelling [Unknown]
  - Fatigue [Unknown]
  - Dysphagia [Unknown]
  - Asthenia [Unknown]
  - Visual impairment [Unknown]
  - Myalgia [Unknown]
  - Peripheral swelling [Unknown]
  - Ocular hyperaemia [Unknown]
  - Dysphonia [Unknown]
  - Dry mouth [Unknown]
  - Feeling cold [Unknown]
  - Arthralgia [Unknown]
  - Paraesthesia [Unknown]
